FAERS Safety Report 25575119 (Version 1)
Quarter: 2025Q3

REPORT INFORMATION
  Report Type: Spontaneous
  Country: JP (occurrence: JP)
  Receive Date: 20250718
  Receipt Date: 20250718
  Transmission Date: 20251021
  Serious: Yes (Death, Hospitalization)
  Sender: MERCK SHARP & DOHME LLC
  Company Number: JP-009507513-2307795

PATIENT
  Age: 75 Year
  Sex: Male
  Weight: 55 kg

DRUGS (3)
  1. KEYTRUDA [Suspect]
     Active Substance: PEMBROLIZUMAB
     Indication: Lung adenocarcinoma
     Route: 042
     Dates: start: 20250611, end: 20250611
  2. CISPLATIN [Concomitant]
     Active Substance: CISPLATIN
     Route: 042
     Dates: start: 20250611, end: 20250611
  3. PEMETREXED [Concomitant]
     Active Substance: PEMETREXED
     Route: 042
     Dates: start: 20250611, end: 20250611

REACTIONS (1)
  - Haemophagocytic lymphohistiocytosis [Fatal]

NARRATIVE: CASE EVENT DATE: 20250624
